FAERS Safety Report 8256641-7 (Version None)
Quarter: 2012Q2

REPORT INFORMATION
  Report Type: 
  Country: None (occurrence: None)
  Receive Date: 20120403
  Receipt Date: 20120330
  Transmission Date: 20120825
  Serious: Yes (Hospitalization, Disabling, Other)
  Sender: FDA-Public Use
  Company Number: US-MERCK-1103USA03926

PATIENT
  Age: 62 Year
  Sex: Female
  Weight: 89 kg

DRUGS (6)
  1. FOSAMAX [Suspect]
     Indication: OSTEOPOROSIS
     Route: 048
     Dates: start: 19970101, end: 20060401
  2. METHOTREXATE [Concomitant]
     Indication: RHEUMATOID ARTHRITIS
     Route: 048
     Dates: start: 19960101
  3. FOSAMAX [Suspect]
     Indication: OSTEOPENIA
     Route: 048
     Dates: start: 19970101, end: 20060401
  4. FOSAMAX PLUS D [Suspect]
     Indication: OSTEOPOROSIS
     Route: 048
     Dates: start: 20060410, end: 20070920
  5. FOSAMAX PLUS D [Suspect]
     Indication: OSTEOPENIA
     Route: 048
     Dates: start: 20060410, end: 20070920
  6. ENBREL [Concomitant]
     Indication: RHEUMATOID ARTHRITIS
     Route: 051
     Dates: start: 19980101

REACTIONS (54)
  - SPINAL OSTEOARTHRITIS [None]
  - MYOPATHY [None]
  - VITAMIN D DEFICIENCY [None]
  - URGE INCONTINENCE [None]
  - DRUG HYPERSENSITIVITY [None]
  - ADVERSE DRUG REACTION [None]
  - CEREBRAL THROMBOSIS [None]
  - RHEUMATOID ARTHRITIS [None]
  - UTERINE DISORDER [None]
  - IRRITABLE BOWEL SYNDROME [None]
  - HAEMORRHOIDS [None]
  - URINARY TRACT INFECTION [None]
  - ABDOMINAL DISCOMFORT [None]
  - CONSTIPATION [None]
  - HELICOBACTER INFECTION [None]
  - VULVOVAGINAL DRYNESS [None]
  - RESTRICTIVE PULMONARY DISEASE [None]
  - HYPERTONIC BLADDER [None]
  - BILIARY DILATATION [None]
  - REFLUX GASTRITIS [None]
  - AMNESIA [None]
  - DIVERTICULUM [None]
  - RESPIRATORY MUSCLE WEAKNESS [None]
  - NAUSEA [None]
  - PAIN [None]
  - FALL [None]
  - MENINGIOMA [None]
  - COLONIC POLYP [None]
  - HEPATOMEGALY [None]
  - SUBDURAL HAEMATOMA [None]
  - LIVER FUNCTION TEST ABNORMAL [None]
  - INFECTION [None]
  - SEBORRHOEIC KERATOSIS [None]
  - GASTROOESOPHAGEAL REFLUX DISEASE [None]
  - OBSTRUCTIVE AIRWAYS DISORDER [None]
  - FEMUR FRACTURE [None]
  - GALLBLADDER DISORDER [None]
  - URINARY RETENTION [None]
  - GASTROINTESTINAL DISORDER [None]
  - HIATUS HERNIA [None]
  - STRESS URINARY INCONTINENCE [None]
  - SLEEP DISORDER [None]
  - OCULAR MYASTHENIA [None]
  - DYSPEPSIA [None]
  - HELICOBACTER GASTRITIS [None]
  - APPENDIX DISORDER [None]
  - TONSILLAR DISORDER [None]
  - CARDIAC DISCOMFORT [None]
  - LENTIGO [None]
  - PALPITATIONS [None]
  - SLEEP APNOEA SYNDROME [None]
  - DYSPNOEA EXERTIONAL [None]
  - CHANGE OF BOWEL HABIT [None]
  - ACTINIC KERATOSIS [None]
